FAERS Safety Report 4902468-0 (Version None)
Quarter: 2006Q1

REPORT INFORMATION
  Report Type: 
  Country: None (occurrence: None)
  Receive Date: 20060202
  Receipt Date: 20050818
  Transmission Date: 20060701
  Serious: Yes (Other)
  Sender: FDA-Public Use
  Company Number: 001#1#2005-00246

PATIENT
  Age: 87 Year
  Sex: Male

DRUGS (4)
  1. ALPROSTADIL [Suspect]
     Indication: PERIPHERAL ARTERIAL OCCLUSIVE DISEASE
     Dosage: 80 MCG (40 2 IN 1 DAY(S)); 40 MCG (20 MCG 2 IN 1 DAY(S)); INTRAVENOUS  (NOT OTHERWISE SPECIFIED)
     Route: 042
     Dates: start: 20050806, end: 20050813
  2. ALPROSTADIL [Suspect]
     Indication: PERIPHERAL ARTERIAL OCCLUSIVE DISEASE
     Dosage: 80 MCG (40 2 IN 1 DAY(S)); 40 MCG (20 MCG 2 IN 1 DAY(S)); INTRAVENOUS  (NOT OTHERWISE SPECIFIED)
     Route: 042
     Dates: start: 20050814, end: 20050820
  3. SODIUM CHLORIDE [Suspect]
     Indication: PERIPHERAL ARTERIAL OCCLUSIVE DISEASE
     Dosage: 200 ML (100 ML 2 IN 1 DAY(S))'; INTRAVENOUS (NOT OTHERWISE SPECIFIED)
     Route: 042
     Dates: start: 20050806, end: 20050820
  4. AMLODIPINE (AMLODIPINE BESILATE) [Concomitant]

REACTIONS (5)
  - CHILLS [None]
  - CYANOSIS [None]
  - PYREXIA [None]
  - SOMNOLENCE [None]
  - TREMOR [None]
